FAERS Safety Report 6299560-8 (Version None)
Quarter: 2009Q3

REPORT INFORMATION
  Report Type: 
  Country: None (occurrence: None)
  Receive Date: 20090806
  Receipt Date: 20090219
  Transmission Date: 20100115
  Serious: Yes (Hospitalization, Other)
  Sender: FDA-Public Use
  Company Number: US-PFIZER INC-2009157784

PATIENT
  Sex: Female

DRUGS (2)
  1. DILANTIN [Suspect]
     Dosage: 100 MG, UNK
  2. DRUG, UNSPECIFIED [Suspect]

REACTIONS (4)
  - FALL [None]
  - OVERDOSE [None]
  - PNEUMONIA [None]
  - TREMOR [None]
